FAERS Safety Report 18438956 (Version 1)
Quarter: 2020Q4

REPORT INFORMATION
  Report Type: Spontaneous
  Country: CN (occurrence: CN)
  Receive Date: 20201028
  Receipt Date: 20201028
  Transmission Date: 20210114
  Serious: Yes (Life-Threatening, Other)
  Sender: FDA-Public Use
  Company Number: CN-TAKEDA-2020TUS044829

PATIENT
  Age: 68 Year
  Sex: Female
  Weight: 45 kg

DRUGS (1)
  1. VELCADE [Suspect]
     Active Substance: BORTEZOMIB
     Indication: PLASMA CELL MYELOMA
     Dosage: UNK, 1/WEEK
     Route: 065
     Dates: start: 202005

REACTIONS (7)
  - Dysphagia [Unknown]
  - Asthenia [Unknown]
  - Pneumonia [Unknown]
  - Dyspepsia [Unknown]
  - Weight decreased [Unknown]
  - Decreased appetite [Unknown]
  - Eating disorder [Unknown]
